FAERS Safety Report 5877752-7 (Version None)
Quarter: 2008Q3

REPORT INFORMATION
  Report Type: 
  Country: None (occurrence: None)
  Receive Date: 20080911
  Receipt Date: 20080901
  Transmission Date: 20090109
  Serious: Yes (Hospitalization)
  Sender: FDA-Public Use
  Company Number: FR-ROCHE-584235

PATIENT
  Age: 85 Year
  Sex: Female

DRUGS (2)
  1. BONIVA [Suspect]
     Indication: OSTEOPOROSIS
     Route: 042
  2. PLAVIX [Concomitant]

REACTIONS (1)
  - OESOPHAGEAL ULCER HAEMORRHAGE [None]
